FAERS Safety Report 19889885 (Version 1)
Quarter: 2021Q3

REPORT INFORMATION
  Report Type: Spontaneous
  Country: US (occurrence: US)
  Receive Date: 20210928
  Receipt Date: 20210928
  Transmission Date: 20211014
  Serious: Yes (Death, Hospitalization, Disabling)
  Sender: FDA-Public Use
  Company Number: None

PATIENT
  Age: 90 Year
  Sex: Male
  Weight: 81 kg

DRUGS (1)
  1. VALACYCLOVIR [Suspect]
     Active Substance: VALACYCLOVIR HYDROCHLORIDE
     Indication: HERPES ZOSTER
     Dosage: QUANTITY:1 TABLET(S);?
     Route: 048
     Dates: start: 20210724, end: 20210801

REACTIONS (13)
  - Stomatitis [None]
  - Swelling face [None]
  - Dyspnoea [None]
  - Lip swelling [None]
  - Aplastic anaemia [None]
  - Asthenia [None]
  - Gait disturbance [None]
  - Hallucination [None]
  - Cognitive disorder [None]
  - Wheezing [None]
  - Fatigue [None]
  - Dizziness [None]
  - Decreased appetite [None]

NARRATIVE: CASE EVENT DATE: 20210724
